FAERS Safety Report 19614351 (Version 1)
Quarter: 2021Q3

REPORT INFORMATION
  Report Type: Spontaneous
  Country: SE (occurrence: SE)
  Receive Date: 20210727
  Receipt Date: 20210727
  Transmission Date: 20211014
  Serious: Yes (Hospitalization)
  Sender: FDA-Public Use
  Company Number: SE-TEVA-2021-SE-1936537

PATIENT
  Age: 25 Year
  Sex: Female

DRUGS (5)
  1. ESCITALOPRAM [Suspect]
     Active Substance: ESCITALOPRAM OXALATE
     Route: 065
     Dates: start: 202107, end: 202107
  2. JARNPREPARAT [Suspect]
     Active Substance: IRON
     Route: 065
     Dates: start: 202107, end: 202107
  3. FLUOXETIN [Suspect]
     Active Substance: FLUOXETINE HYDROCHLORIDE
     Route: 065
     Dates: start: 202107, end: 202107
  4. SERTRALIN [Suspect]
     Active Substance: SERTRALINE HYDROCHLORIDE
     Route: 065
     Dates: start: 202107, end: 202107
  5. ASA [Suspect]
     Active Substance: ASPIRIN
     Route: 065
     Dates: start: 202107, end: 202107

REACTIONS (6)
  - Pyrexia [Recovering/Resolving]
  - Toxicity to various agents [Recovering/Resolving]
  - Intentional self-injury [Recovering/Resolving]
  - Analgesic drug level increased [Recovering/Resolving]
  - Tremor [Recovering/Resolving]
  - Intentional overdose [Recovering/Resolving]

NARRATIVE: CASE EVENT DATE: 202107
